FAERS Safety Report 9650709 (Version 2)
Quarter: 2013Q4

REPORT INFORMATION
  Report Type: Spontaneous
  Country: NZ (occurrence: NZ)
  Receive Date: 20131029
  Receipt Date: 20131107
  Transmission Date: 20140711
  Serious: Yes (Death)
  Sender: FDA-Public Use
  Company Number: NZ-ROCHE-1295842

PATIENT
  Age: 17 Year
  Sex: Male

DRUGS (2)
  1. ETANERCEPT [Suspect]
     Indication: TAKAYASU^S ARTERITIS
     Route: 065
  2. PREDNISONE [Suspect]
     Indication: TAKAYASU^S ARTERITIS
     Route: 065

REACTIONS (1)
  - Myocardial infarction [Fatal]
